FAERS Safety Report 8016093-9 (Version None)
Quarter: 2011Q4

REPORT INFORMATION
  Report Type: 
  Country: None (occurrence: None)
  Receive Date: 20111230
  Receipt Date: 20111219
  Transmission Date: 20120403
  Serious: Yes (Hospitalization, Other)
  Sender: FDA-Public Use
  Company Number: BR-SANOFI-AVENTIS-2011SA083364

PATIENT
  Sex: Male
  Weight: 93 kg

DRUGS (10)
  1. HYGROTON [Concomitant]
     Indication: DIURETIC THERAPY
     Route: 048
  2. LANTUS [Suspect]
     Route: 058
  3. ENALAPRIL MALEATE [Concomitant]
     Route: 048
  4. LANTUS [Suspect]
     Route: 058
  5. LANTUS [Suspect]
     Route: 058
  6. ASPIRIN [Concomitant]
     Route: 048
  7. METFORMIN HCL [Concomitant]
     Indication: TYPE 2 DIABETES MELLITUS
     Route: 048
  8. ATENOLOL [Concomitant]
     Route: 048
  9. HUMALOG [Concomitant]
     Indication: TYPE 2 DIABETES MELLITUS
  10. LANTUS [Suspect]
     Indication: TYPE 2 DIABETES MELLITUS
     Route: 058
     Dates: start: 19990101

REACTIONS (3)
  - RENAL DISORDER [None]
  - PNEUMONIA [None]
  - DRUG ADMINISTRATION ERROR [None]
